FAERS Safety Report 23201505 (Version 1)
Quarter: 2023Q4

REPORT INFORMATION
  Report Type: Report from Study
  Country: CA (occurrence: CA)
  Receive Date: 20231118
  Receipt Date: 20231118
  Transmission Date: 20240110
  Serious: Yes (Death, Other)
  Sender: FDA-Public Use
  Company Number: CA-Ipsen Biopharmaceuticals, Inc.-2023-25862

PATIENT
  Age: 89 Year
  Sex: Female

DRUGS (7)
  1. LANREOTIDE ACETATE [Suspect]
     Active Substance: LANREOTIDE ACETATE
     Indication: Gastroenteropancreatic neuroendocrine tumour disease
     Route: 058
     Dates: start: 20200108
  2. GLYBURIDE [Concomitant]
     Active Substance: GLYBURIDE
  3. IRON [Concomitant]
     Active Substance: IRON
  4. HYDROCHLOROTHIAZIDE [Concomitant]
     Active Substance: HYDROCHLOROTHIAZIDE
  5. CILAZAPRIL ANHYDROUS [Concomitant]
     Active Substance: CILAZAPRIL ANHYDROUS
  6. LEVOTHYROXINE [Concomitant]
     Active Substance: LEVOTHYROXINE
  7. CYANOCOBALAMIN [Concomitant]
     Active Substance: CYANOCOBALAMIN

REACTIONS (2)
  - Death [Fatal]
  - Off label use [Unknown]

NARRATIVE: CASE EVENT DATE: 20200108
